FAERS Safety Report 7584364-6 (Version None)
Quarter: 2011Q2

REPORT INFORMATION
  Report Type: 
  Country: None (occurrence: None)
  Receive Date: 20110630
  Receipt Date: 20110628
  Transmission Date: 20111010
  Serious: No
  Sender: FDA-Public Use
  Company Number: US-PFIZER INC-2011125458

PATIENT
  Sex: Female

DRUGS (2)
  1. LORATADINE AND PSEUDOEPHEDRINE SULFATE [Suspect]
     Indication: HYPERSENSITIVITY
     Dosage: UNK
     Route: 048
     Dates: start: 20110607
  2. LORATADINE AND PSEUDOEPHEDRINE SULFATE [Suspect]
     Indication: SINUS DISORDER

REACTIONS (10)
  - EYE PRURITUS [None]
  - DRUG INEFFECTIVE [None]
  - SNEEZING [None]
  - PAIN [None]
  - SINUS HEADACHE [None]
  - DISCOMFORT [None]
  - SOMNOLENCE [None]
  - LACRIMATION INCREASED [None]
  - NASAL CONGESTION [None]
  - FEELING ABNORMAL [None]
